FAERS Safety Report 8125190-9 (Version None)
Quarter: 2012Q1

REPORT INFORMATION
  Report Type: 
  Country: None (occurrence: None)
  Receive Date: 20120209
  Receipt Date: 20120201
  Transmission Date: 20120608
  Serious: Yes (Other)
  Sender: FDA-Public Use
  Company Number: US-ALEXION PHARMACEUTICALS INC.-A201101879

PATIENT
  Age: 50 Year
  Sex: Female

DRUGS (14)
  1. SOLIRIS [Suspect]
     Dosage: 600 MG, QW
     Route: 042
  2. SOLIRIS [Suspect]
     Dosage: 600 MG, Q2W
     Route: 042
  3. LANSOPRAZOLE [Concomitant]
  4. PIPERACILLIN AND TAZOBACTAM [Concomitant]
  5. SOLIRIS [Suspect]
     Indication: HAEMOLYTIC URAEMIC SYNDROME
     Dosage: 900 MG, QW
     Route: 042
  6. ETANERCEPT [Concomitant]
  7. ESTROGENS CONJUGATED [Concomitant]
     Route: 062
  8. CEFTRIAXONE [Concomitant]
  9. DEXAMETHASONE [Concomitant]
  10. METHYLPREDNISOLONE [Concomitant]
  11. SOLIRIS [Suspect]
     Dosage: 1200 MG, Q2W
     Route: 042
  12. METRONIDAZOLE [Concomitant]
  13. FLUCONAZOLE [Concomitant]
  14. CIPROFLOXACIN [Concomitant]
     Indication: PROPHYLAXIS
     Dosage: UNK FOR 14 DAYS

REACTIONS (4)
  - HAEMOLYSIS [None]
  - NAUSEA [None]
  - VOMITING [None]
  - HAEMORRHAGIC CEREBRAL INFARCTION [None]
